FAERS Safety Report 24095758 (Version 4)
Quarter: 2025Q2

REPORT INFORMATION
  Report Type: Spontaneous
  Country: CH (occurrence: CH)
  Receive Date: 20240716
  Receipt Date: 20250521
  Transmission Date: 20250716
  Serious: Yes (Other)
  Sender: MACLEODS
  Company Number: CH-MLMSERVICE-20240627-PI114828-00330-1

PATIENT

DRUGS (10)
  1. VENLAFAXINE [Suspect]
     Active Substance: VENLAFAXINE HYDROCHLORIDE
     Indication: Depression
     Dosage: MORE THAN 8 YEARS
     Route: 065
     Dates: start: 2015, end: 2023
  2. VENLAFAXINE [Suspect]
     Active Substance: VENLAFAXINE HYDROCHLORIDE
     Route: 065
  3. BISOPROLOL [Concomitant]
     Active Substance: BISOPROLOL
     Indication: Product used for unknown indication
     Route: 065
  4. SACUBITRIL\VALSARTAN [Concomitant]
     Active Substance: SACUBITRIL\VALSARTAN
     Indication: Product used for unknown indication
     Route: 065
  5. TORSEMIDE [Concomitant]
     Active Substance: TORSEMIDE
     Indication: Product used for unknown indication
     Route: 065
  6. EMPAGLIFLOZIN [Concomitant]
     Active Substance: EMPAGLIFLOZIN
     Indication: Product used for unknown indication
     Route: 065
  7. TAMSULOSIN [Concomitant]
     Active Substance: TAMSULOSIN
     Indication: Product used for unknown indication
     Route: 065
  8. INSULIN NOS [Concomitant]
     Active Substance: INSULIN NOS
     Indication: Product used for unknown indication
     Route: 065
  9. Immunoglobulin [Concomitant]
     Indication: Product used for unknown indication
     Route: 042
  10. WARFARIN [Concomitant]
     Active Substance: WARFARIN
     Indication: Product used for unknown indication
     Route: 065

REACTIONS (7)
  - Cardiac failure [Recovered/Resolved]
  - Cardiotoxicity [Unknown]
  - Renal impairment [Unknown]
  - Pleural effusion [Unknown]
  - Atrial fibrillation [Recovered/Resolved]
  - Oedema [Unknown]
  - N-terminal prohormone brain natriuretic peptide increased [Recovering/Resolving]

NARRATIVE: CASE EVENT DATE: 20230101
